FAERS Safety Report 8229088-7 (Version None)
Quarter: 2012Q1

REPORT INFORMATION
  Report Type: 
  Country: None (occurrence: None)
  Receive Date: 20120322
  Receipt Date: 20120320
  Transmission Date: 20120608
  Serious: Yes (Other)
  Sender: FDA-Public Use
  Company Number: US-BAYER-2012-021855

PATIENT
  Age: 16 Year
  Sex: Male
  Weight: 120.18 kg

DRUGS (2)
  1. UNCODEABLE ^UNCLASSIFIABLE^ [Concomitant]
     Indication: PREMEDICATION
  2. MAGNEVIST [Suspect]
     Indication: NUCLEAR MAGNETIC RESONANCE IMAGING BRAIN
     Dosage: 2 ML, UNK
     Route: 042

REACTIONS (2)
  - DYSPNOEA [None]
  - ADVERSE EVENT [None]
